FAERS Safety Report 10714950 (Version 1)
Quarter: 2015Q1

REPORT INFORMATION
  Report Type: Spontaneous
  Country: US (occurrence: US)
  Receive Date: 20150115
  Receipt Date: 20150115
  Transmission Date: 20150721
  Serious: No
  Sender: FDA-Public Use
  Company Number: US-GLAXOSMITHKLINE-US2014GSK047027

PATIENT
  Age: 34 Year
  Sex: Female
  Weight: 61.22 kg

DRUGS (5)
  1. TAFINLAR [Suspect]
     Active Substance: DABRAFENIB MESYLATE
     Indication: MALIGNANT MELANOMA
     Dosage: 150 MG, BID
     Route: 065
     Dates: start: 20140826
  2. MEKINIST [Suspect]
     Active Substance: TRAMETINIB DIMETHYL SULFOXIDE
     Indication: PRODUCT USED FOR UNKNOWN INDICATION
     Dosage: UNK, U
     Route: 065
  3. LIDOCAINE. [Concomitant]
     Active Substance: LIDOCAINE
  4. ONDANSETRON [Concomitant]
     Active Substance: ONDANSETRON
  5. BIOTENE [Concomitant]
     Active Substance: SODIUM MONOFLUOROPHOSPHATE

REACTIONS (13)
  - Arthralgia [Unknown]
  - Migraine [Unknown]
  - Gingival bleeding [Unknown]
  - Pyrexia [Unknown]
  - Nausea [Unknown]
  - Blood glucose decreased [Unknown]
  - Joint swelling [Unknown]
  - Stomatitis [Unknown]
  - Dizziness [Unknown]
  - Chills [Unknown]
  - Weight decreased [Unknown]
  - Eye pain [Unknown]
  - Abdominal pain [Unknown]

NARRATIVE: CASE EVENT DATE: 201408
